FAERS Safety Report 5606665-0 (Version None)
Quarter: 2008Q1

REPORT INFORMATION
  Report Type: 
  Country: None (occurrence: None)
  Receive Date: 20080129
  Receipt Date: 20080118
  Transmission Date: 20080703
  Serious: Yes (Hospitalization)
  Sender: FDA-Public Use
  Company Number: US-AMGEN-US261473

PATIENT
  Sex: Male

DRUGS (7)
  1. PROCRIT [Suspect]
     Indication: ANAEMIA
     Route: 058
     Dates: start: 20071201
  2. RIBAVIRIN [Concomitant]
     Route: 065
     Dates: start: 20071022
  3. PEGASYS [Concomitant]
     Route: 058
     Dates: start: 20071022
  4. PAXIL [Concomitant]
     Route: 065
     Dates: start: 20080101
  5. ACTOS [Concomitant]
     Route: 065
     Dates: start: 20071215
  6. DIOVAN [Concomitant]
     Route: 065
     Dates: start: 20071215
  7. BENADRYL [Concomitant]
     Route: 065
     Dates: start: 20071101

REACTIONS (4)
  - CONVULSION [None]
  - DIZZINESS [None]
  - INCONTINENCE [None]
  - VOMITING [None]
